FAERS Safety Report 6648324-1 (Version None)
Quarter: 2010Q1

REPORT INFORMATION
  Report Type: 
  Country: None (occurrence: None)
  Receive Date: 20100319
  Receipt Date: 20100304
  Transmission Date: 20100710
  Serious: Yes (Death)
  Sender: FDA-Public Use
  Company Number: 2010000795

PATIENT
  Age: 60 Year
  Sex: Male

DRUGS (6)
  1. ERLOTINIB HYDROCHLORIDE [Suspect]
     Indication: NON-SMALL CELL LUNG CANCER
     Dosage: 150 MG, ORAL
     Route: 048
     Dates: start: 20080303, end: 20080307
  2. GEMCITABINE [Concomitant]
  3. CISPLATIN [Concomitant]
  4. DOCETAXEL [Concomitant]
  5. IRINOTECAN HCL [Concomitant]
  6. CARBOPLATIN [Concomitant]

REACTIONS (3)
  - DYSPNOEA [None]
  - MALIGNANT NEOPLASM PROGRESSION [None]
  - NON-SMALL CELL LUNG CANCER [None]
